FAERS Safety Report 25461736 (Version 1)
Quarter: 2025Q2

REPORT INFORMATION
  Report Type: Spontaneous
  Country: US (occurrence: None)
  Receive Date: 20250619
  Receipt Date: 20250619
  Transmission Date: 20250717
  Serious: Yes (Other)
  Sender: FDA-CTU
  Company Number: None

PATIENT
  Age: 42 Year
  Sex: Male
  Weight: 108 kg

DRUGS (6)
  1. HERBALS\MITRAGYNINE [Suspect]
     Active Substance: HERBALS\MITRAGYNINE
     Indication: Anxiety
  2. HERBALS\MITRAGYNINE [Suspect]
     Active Substance: HERBALS\MITRAGYNINE
     Indication: Pain management
  3. KLONOPIN [Concomitant]
     Active Substance: CLONAZEPAM
  4. Vrylar [Concomitant]
  5. IBUPROFEN [Concomitant]
     Active Substance: IBUPROFEN
  6. HERBALS\MITRAGYNINE [Concomitant]
     Active Substance: HERBALS\MITRAGYNINE

REACTIONS (7)
  - Drug dependence [None]
  - Depressed level of consciousness [None]
  - Respiratory depression [None]
  - Withdrawal syndrome [None]
  - Hyperhidrosis [None]
  - Tachycardia [None]
  - Diarrhoea [None]

NARRATIVE: CASE EVENT DATE: 20250618
